FAERS Safety Report 15966931 (Version 1)
Quarter: 2019Q1

REPORT INFORMATION
  Report Type: Spontaneous
  Country: IT (occurrence: IT)
  Receive Date: 20190215
  Receipt Date: 20190215
  Transmission Date: 20190418
  Serious: Yes (Disabling)
  Sender: FDA-Public Use
  Company Number: IT-MYLANLABS-2019M1012897

PATIENT
  Age: 46 Year
  Sex: Female

DRUGS (6)
  1. BUPROPIONE [Suspect]
     Active Substance: BUPROPION HYDROCHLORIDE
     Indication: WEIGHT LOSS DIET
     Dosage: 150 MILLIGRAM, QD
     Route: 048
     Dates: start: 20111101
  2. FUROSEMIDE. [Suspect]
     Active Substance: FUROSEMIDE
     Indication: WEIGHT LOSS DIET
     Dosage: 9 MILLIGRAM, QD
     Route: 048
     Dates: start: 20111101
  3. METFORMIN [Suspect]
     Active Substance: METFORMIN HYDROCHLORIDE
     Indication: WEIGHT LOSS DIET
     Dosage: 300 MILLIGRAM, QD
     Route: 048
     Dates: start: 20111101
  4. FUCUS VESICULOSUS DRY EXTRACT [Suspect]
     Active Substance: FUCUS VESICULOSUS
     Indication: WEIGHT LOSS DIET
     Dosage: 3 MILLIGRAM, QD
     Route: 048
     Dates: start: 20111101
  5. DEANOL P-ACETAMIDOBENZOATE [Suspect]
     Active Substance: DEANOL ACETAMIDOBENZOATE
     Indication: WEIGHT LOSS DIET
     Dosage: 180 MILLIGRAM, QD
     Route: 048
     Dates: start: 20111101
  6. EFEDRINA /00021402/ [Suspect]
     Active Substance: EPHEDRINE HYDROCHLORIDE
     Indication: WEIGHT LOSS DIET
     Dosage: 135 MILLIGRAM, QD
     Route: 048
     Dates: start: 20111101

REACTIONS (2)
  - Ischaemic stroke [Recovered/Resolved with Sequelae]
  - Aphasia [Recovered/Resolved with Sequelae]

NARRATIVE: CASE EVENT DATE: 20120203
